FAERS Safety Report 26082038 (Version 1)
Quarter: 2025Q4

REPORT INFORMATION
  Report Type: Spontaneous
  Country: CN (occurrence: CN)
  Receive Date: 20251124
  Receipt Date: 20251124
  Transmission Date: 20260117
  Serious: Yes (Hospitalization)
  Sender: MERCK SHARP & DOHME LLC
  Company Number: CN-009507513-2350482

PATIENT
  Age: 66 Year
  Sex: Male
  Weight: 52.5 kg

DRUGS (1)
  1. KEYTRUDA [Suspect]
     Active Substance: PEMBROLIZUMAB
     Indication: Lung neoplasm malignant
     Dosage: 200 MG, EVERY 21 DAYS
     Route: 041
     Dates: start: 20251014, end: 20251014

REACTIONS (2)
  - Renal injury [Unknown]
  - Nephritis [Unknown]

NARRATIVE: CASE EVENT DATE: 20251108
